FAERS Safety Report 8598484-0 (Version None)
Quarter: 2012Q3

REPORT INFORMATION
  Report Type: 
  Country: None (occurrence: None)
  Receive Date: 20120816
  Receipt Date: 20120814
  Transmission Date: 20120928
  Serious: Yes (Other)
  Sender: FDA-Public Use
  Company Number: US-ROCHE-1093773

PATIENT
  Sex: Female

DRUGS (2)
  1. ERIVEDGE [Suspect]
     Indication: BASAL CELL CARCINOMA
     Route: 048
     Dates: start: 20120511, end: 20120703
  2. AMBIEN [Concomitant]
     Indication: INSOMNIA

REACTIONS (1)
  - BASAL CELL CARCINOMA [None]
